FAERS Safety Report 4786601-X (Version None)
Quarter: 2005Q3

REPORT INFORMATION
  Report Type: 
  Country: None (occurrence: None)
  Receive Date: 20050927
  Receipt Date: 20050714
  Transmission Date: 20060218
  Serious: No
  Sender: FDA-Public Use
  Company Number: USA0506101693

PATIENT
  Age: 43 Year
  Sex: Male

DRUGS (6)
  1. STRATTERA [Suspect]
     Indication: ATTENTION DEFICIT/HYPERACTIVITY DISORDER
     Dosage: 40 MG/2
     Dates: start: 20050617
  2. SYMBYAX [Suspect]
     Dosage: 1 DSG FORM
  3. CLONOPIN (CLONAZEPAM) [Concomitant]
  4. ESZOPICLONE [Concomitant]
  5. CRESTOR [Concomitant]
  6. LEXAPRO [Concomitant]

REACTIONS (11)
  - CONFUSIONAL STATE [None]
  - CONSTIPATION [None]
  - DIZZINESS [None]
  - DRUG INTOLERANCE [None]
  - FATIGUE [None]
  - FEELING ABNORMAL [None]
  - INSOMNIA [None]
  - MIDDLE INSOMNIA [None]
  - SLUGGISHNESS [None]
  - SNAKE BITE [None]
  - SOMNOLENCE [None]
